FAERS Safety Report 12246488 (Version 2)
Quarter: 2016Q2

REPORT INFORMATION
  Report Type: Spontaneous
  Country: TR (occurrence: TR)
  Receive Date: 20160407
  Receipt Date: 20160517
  Transmission Date: 20160815
  Serious: Yes (Hospitalization)
  Sender: FDA-Public Use
  Company Number: TR-VALIDUS PHARMACEUTICALS LLC-TR-2016VAL000806

PATIENT
  Age: 32 Year
  Sex: Female

DRUGS (7)
  1. METOPROLOL. [Suspect]
     Active Substance: METOPROLOL
     Indication: SINUS TACHYCARDIA
     Dosage: UNK
     Route: 048
  2. IVABRADINE [Suspect]
     Active Substance: IVABRADINE
     Indication: SINUS TACHYCARDIA
     Dosage: 2X5 MG, UNK
  3. DIGOXIN SANDOZ [Suspect]
     Active Substance: DIGOXIN
     Indication: HEART RATE INCREASED
     Dosage: 0.25 MG, QD
  4. ESMOLOL [Suspect]
     Active Substance: ESMOLOL HYDROCHLORIDE
     Indication: SINUS TACHYCARDIA
     Dosage: UNK, IV INFUSTION
     Route: 042
  5. FUROSEMIDE. [Suspect]
     Active Substance: FUROSEMIDE
     Indication: MITRAL VALVE INCOMPETENCE
     Dosage: UNK
  6. ADENOSINE. [Suspect]
     Active Substance: ADENOSINE
     Indication: SUPRAVENTRICULAR TACHYCARDIA
     Dosage: UNK
  7. VERAPAMIL [Suspect]
     Active Substance: VERAPAMIL HYDROCHLORIDE
     Indication: HEART RATE INCREASED
     Dosage: 240 MG, QD

REACTIONS (7)
  - Drug ineffective [Unknown]
  - Heart rate increased [Recovered/Resolved]
  - Mitral valve incompetence [Recovering/Resolving]
  - Tachycardia induced cardiomyopathy [Unknown]
  - Normal newborn [Unknown]
  - Cardiac failure [Unknown]
  - Maternal exposure during pregnancy [Unknown]
